FAERS Safety Report 9326379 (Version 1)
Quarter: 2013Q2

REPORT INFORMATION
  Report Type: Spontaneous
  Country: IT (occurrence: IT)
  Receive Date: 20130604
  Receipt Date: 20130604
  Transmission Date: 20140414
  Serious: Yes (Death)
  Sender: FDA-Public Use
  Company Number: IT-ELI_LILLY_AND_COMPANY-IT201305009247

PATIENT
  Age: 77 Year
  Sex: Female

DRUGS (4)
  1. ADCIRCA [Suspect]
     Dosage: 40 MG, QD
     Route: 048
     Dates: start: 20130304, end: 20130514
  2. TRACLEER [Concomitant]
     Indication: PULMONARY HYPERTENSION
     Dosage: 125 MG, QD
     Route: 048
     Dates: start: 20130510, end: 20130514
  3. WARFARIN SODIUM [Concomitant]
     Dosage: UNK
     Route: 048
     Dates: start: 20130402, end: 20130514
  4. FUROSEMIDE [Concomitant]
     Dosage: UNK
     Dates: start: 20130304, end: 20130514

REACTIONS (1)
  - Cardio-respiratory arrest [Fatal]
